FAERS Safety Report 14345492 (Version 1)
Quarter: 2018Q1

REPORT INFORMATION
  Report Type: Spontaneous
  Country: US (occurrence: US)
  Receive Date: 20180103
  Receipt Date: 20180103
  Transmission Date: 20180509
  Serious: Yes (Hospitalization)
  Sender: FDA-Public Use
  Company Number: US-NOVOPROD-578694

PATIENT
  Age: 59 Year
  Sex: Male
  Weight: 86.62 kg

DRUGS (1)
  1. TRESIBA [Suspect]
     Active Substance: INSULIN DEGLUDEC
     Indication: TYPE 1 DIABETES MELLITUS
     Dosage: 8 U, QD
     Route: 058
     Dates: start: 20171012, end: 20171212

REACTIONS (4)
  - Impaired gastric emptying [Recovered/Resolved]
  - Diabetes mellitus inadequate control [Recovered/Resolved]
  - Weight decreased [Not Recovered/Not Resolved]
  - Dysstasia [Unknown]

NARRATIVE: CASE EVENT DATE: 2017
